FAERS Safety Report 22957005 (Version 4)
Quarter: 2024Q2

REPORT INFORMATION
  Report Type: Spontaneous
  Country: CA (occurrence: CA)
  Receive Date: 20230919
  Receipt Date: 20240412
  Transmission Date: 20240715
  Serious: Yes (Life-Threatening, Other)
  Sender: FDA-Public Use
  Company Number: CA-PFIZER INC-PV202300156567

PATIENT
  Age: 11 Month
  Sex: Male
  Weight: 12 kg

DRUGS (2)
  1. LIDOCAINE HYDROCHLORIDE [Suspect]
     Active Substance: LIDOCAINE HYDROCHLORIDE
     Indication: Ventricular tachycardia
     Dosage: 1 MG/KG
  2. SODIUM BICARBONATE [Concomitant]
     Active Substance: SODIUM BICARBONATE
     Indication: Ventricular tachycardia
     Dosage: HYPERTONIC NAHCO{INF}3{/INF} (1 MEQ/KG)

REACTIONS (1)
  - Generalised tonic-clonic seizure [Recovered/Resolved]
